FAERS Safety Report 6526586-9 (Version None)
Quarter: 2010Q1

REPORT INFORMATION
  Report Type: 
  Country: None (occurrence: None)
  Receive Date: 20100105
  Receipt Date: 20091223
  Transmission Date: 20100710
  Serious: Yes (Hospitalization, Other)
  Sender: FDA-Public Use
  Company Number: US-ROCHE-657576

PATIENT
  Sex: Female
  Weight: 72.6 kg

DRUGS (7)
  1. ACCUTANE [Suspect]
     Route: 048
     Dates: start: 20020128
  2. ACCUTANE [Suspect]
     Route: 048
     Dates: start: 20020326
  3. ACCUTANE [Suspect]
     Route: 048
     Dates: start: 20020608
  4. DIFFERIN [Concomitant]
     Indication: ACNE
  5. CLEOCIN [Concomitant]
     Indication: ACNE
  6. CUTIVATE [Concomitant]
     Indication: ACNE
  7. DIFLUCAN [Concomitant]

REACTIONS (16)
  - ANAL FISSURE [None]
  - APHTHOUS STOMATITIS [None]
  - BLOOD TRIGLYCERIDES INCREASED [None]
  - CANDIDIASIS [None]
  - CROHN'S DISEASE [None]
  - DEPRESSION [None]
  - DRY SKIN [None]
  - EYE DISORDER [None]
  - INFLAMMATORY BOWEL DISEASE [None]
  - KERATITIS [None]
  - MELANOCYTIC NAEVUS [None]
  - MILIA [None]
  - SMALL INTESTINAL OBSTRUCTION [None]
  - SUICIDAL IDEATION [None]
  - TINEA PEDIS [None]
  - ULCERATIVE KERATITIS [None]
